FAERS Safety Report 6686129-6 (Version None)
Quarter: 2010Q2

REPORT INFORMATION
  Report Type: 
  Country: None (occurrence: None)
  Receive Date: 20100419
  Receipt Date: 20100412
  Transmission Date: 20101027
  Serious: Yes (Death)
  Sender: FDA-Public Use
  Company Number: IL-ASTRAZENECA-2010SE15918

PATIENT
  Age: 77 Year
  Sex: Female

DRUGS (6)
  1. SEROQUEL XR [Suspect]
     Indication: MAJOR DEPRESSION
     Route: 048
  2. SEROQUEL XR [Suspect]
     Route: 048
  3. SEROQUEL XR [Suspect]
     Route: 048
  4. VENLAFAXINE HYDROCHLORIDE XR [Concomitant]
     Indication: MAJOR DEPRESSION
  5. VENLAFAXINE HYDROCHLORIDE XR [Concomitant]
  6. ATENOLOL [Concomitant]

REACTIONS (1)
  - DEATH [None]
